FAERS Safety Report 24243531 (Version 1)
Quarter: 2024Q3

REPORT INFORMATION
  Report Type: Spontaneous
  Country: US (occurrence: US)
  Receive Date: 20240823
  Receipt Date: 20240823
  Transmission Date: 20241017
  Serious: No
  Sender: PFIZER
  Company Number: US-PFIZER INC-202400240097

PATIENT
  Age: 57 Year
  Sex: Female

DRUGS (2)
  1. PAXLOVID [Suspect]
     Active Substance: NIRMATRELVIR\RITONAVIR
     Indication: COVID-19 treatment
     Dosage: UNK
     Dates: start: 20240810, end: 20240814
  2. ALLERGY RELIEF D 12 HOUR [Concomitant]
     Active Substance: LORATADINE\PSEUDOEPHEDRINE SULFATE
     Dates: start: 20240806, end: 20240809

REACTIONS (4)
  - Fatigue [Unknown]
  - Sneezing [Unknown]
  - Nasal congestion [Unknown]
  - Brain fog [Unknown]

NARRATIVE: CASE EVENT DATE: 20240819
